FAERS Safety Report 5650463-9 (Version None)
Quarter: 2008Q1

REPORT INFORMATION
  Report Type: 
  Country: None (occurrence: None)
  Receive Date: 20080304
  Receipt Date: 20080304
  Transmission Date: 20080703
  Serious: Yes (Hospitalization)
  Sender: FDA-Public Use
  Company Number: None

PATIENT
  Sex: Male

DRUGS (5)
  1. CYTOXAN [Suspect]
     Dosage: 750 MG/M2
     Dates: start: 20080222
  2. ADRIAMYCIN [Suspect]
     Dosage: 50MG/M2
     Dates: start: 20020222
  3. VINCRISTINE [Suspect]
     Dosage: 2.0MG IVP
     Route: 042
     Dates: start: 20080222
  4. PREDNISONE [Suspect]
     Dosage: 100MG PO X 5D
     Route: 048
     Dates: start: 20020222
  5. NEULASTA [Concomitant]

REACTIONS (2)
  - PNEUMOCYSTIS JIROVECI PNEUMONIA [None]
  - TACHYCARDIA [None]
